FAERS Safety Report 10586429 (Version 4)
Quarter: 2015Q1

REPORT INFORMATION
  Report Type: Spontaneous
  Country: US (occurrence: US)
  Receive Date: 20141117
  Receipt Date: 20150217
  Transmission Date: 20150720
  Serious: Yes (Other)
  Sender: FDA-Public Use
  Company Number: US-ROCHE-1484372

PATIENT
  Sex: Female

DRUGS (4)
  1. VALIUM [Suspect]
     Active Substance: DIAZEPAM
     Indication: PRODUCT USED FOR UNKNOWN INDICATION
     Route: 065
  2. KLONOPIN [Suspect]
     Active Substance: CLONAZEPAM
     Indication: NEUROTRANSMITTER LEVEL ALTERED
     Route: 065
  3. KLONOPIN [Suspect]
     Active Substance: CLONAZEPAM
     Route: 065
     Dates: start: 20141110
  4. ROZEREM [Concomitant]
     Active Substance: RAMELTEON
     Indication: INSOMNIA
     Dosage: HAS TO BE COMPOUNDED
     Route: 065

REACTIONS (18)
  - Paraesthesia [Not Recovered/Not Resolved]
  - Migraine [Not Recovered/Not Resolved]
  - Constipation [Unknown]
  - Drug withdrawal syndrome [Unknown]
  - Dyskinesia [Recovered/Resolved]
  - Nausea [Unknown]
  - Head discomfort [Unknown]
  - Drug hypersensitivity [Recovered/Resolved]
  - Expired product administered [Unknown]
  - Feeling abnormal [Recovered/Resolved]
  - Overdose [Unknown]
  - Chest discomfort [Unknown]
  - Product quality issue [Unknown]
  - Balance disorder [Unknown]
  - Diarrhoea [Unknown]
  - Headache [Recovered/Resolved]
  - Insomnia [Not Recovered/Not Resolved]
  - Feeling abnormal [Unknown]
